FAERS Safety Report 10528015 (Version 3)
Quarter: 2014Q4

REPORT INFORMATION
  Report Type: Spontaneous
  Country: JP (occurrence: JP)
  Receive Date: 20141020
  Receipt Date: 20141106
  Transmission Date: 20150528
  Serious: Yes (Other)
  Sender: FDA-Public Use
  Company Number: JP-ELI_LILLY_AND_COMPANY-JP201410005017

PATIENT
  Age: 35 Year
  Sex: Male

DRUGS (4)
  1. CYMBALTA [Suspect]
     Active Substance: DULOXETINE HYDROCHLORIDE
     Indication: DEPRESSION
     Dosage: 20 MG, QD
     Route: 048
     Dates: start: 20140512, end: 2014
  2. ADALAT [Concomitant]
     Active Substance: NIFEDIPINE
  3. MICARDIS [Concomitant]
     Active Substance: TELMISARTAN
  4. CYMBALTA [Suspect]
     Active Substance: DULOXETINE HYDROCHLORIDE
     Dosage: 30 MG, QD
     Route: 048
     Dates: start: 2014, end: 20141006

REACTIONS (3)
  - Intentional product misuse [Unknown]
  - Phaeochromocytoma [Unknown]
  - Hypertension [Unknown]
